FAERS Safety Report 9213411 (Version 1)
Quarter: 2013Q2

REPORT INFORMATION
  Report Type: Spontaneous
  Country: US (occurrence: None)
  Receive Date: 20130405
  Receipt Date: 20130405
  Transmission Date: 20140414
  Serious: Yes (Hospitalization)
  Sender: FDA-Public Use
  Company Number: None

PATIENT
  Age: 65 Year
  Sex: Male
  Weight: 102.7 kg

DRUGS (1)
  1. WARFARIN [Suspect]
     Route: 048
     Dates: start: 20120814

REACTIONS (2)
  - Haemorrhage [None]
  - Haemoglobin decreased [None]
